FAERS Safety Report 9445189 (Version 2)
Quarter: 2013Q3

REPORT INFORMATION
  Report Type: Spontaneous
  Country: US (occurrence: US)
  Receive Date: 20130807
  Receipt Date: 20130822
  Transmission Date: 20140515
  Serious: Yes (Other)
  Sender: FDA-Public Use
  Company Number: US-GLAXOSMITHKLINE-A1036517A

PATIENT
  Age: 77 Year
  Sex: Female

DRUGS (4)
  1. ROPINIROLE [Suspect]
     Indication: PARKINSON^S DISEASE
     Route: 065
  2. AMANTADINE [Suspect]
     Indication: PARKINSON^S DISEASE
     Route: 065
  3. CARBIDOPA + LEVODOPA [Suspect]
     Indication: PARKINSON^S DISEASE
     Route: 065
  4. BABY ASPIRIN [Concomitant]

REACTIONS (9)
  - Convulsion [Recovered/Resolved]
  - Motor dysfunction [Recovered/Resolved]
  - Weight decreased [Recovered/Resolved]
  - Balance disorder [Recovering/Resolving]
  - Fall [Recovered/Resolved]
  - Insomnia [Unknown]
  - Dizziness [Unknown]
  - Memory impairment [Unknown]
  - Local swelling [Recovering/Resolving]
